FAERS Safety Report 9732916 (Version 4)
Quarter: 2014Q2

REPORT INFORMATION
  Report Type: Not Available
  Country: GB (occurrence: GB)
  Receive Date: 20131205
  Receipt Date: 20140627
  Transmission Date: 20141212
  Serious: Yes (Death, Other)
  Sender: FDA-Public Use
  Company Number: GB-PURDUE-GBR-2013-0013450

PATIENT
  Age: 48 Year
  Sex: Female

DRUGS (6)
  1. MORPHINE SULFATE [Suspect]
     Route: 048
  2. LANSOPRAZOLE [Suspect]
     Indication: PRODUCT USED FOR UNKNOWN INDICATION
     Dosage: UNK
  3. FERINJECT [Suspect]
     Indication: IRON DEFICIENCY ANAEMIA
     Dosage: 1000 UNK, UNK
     Dates: start: 20130116, end: 20130116
  4. FERINJECT [Suspect]
     Dosage: 1000 MG, UNK
     Route: 042
     Dates: start: 20130109, end: 20130109
  5. FERINJECT [Suspect]
     Dosage: 1000 MG, UNK
     Route: 042
     Dates: start: 20121127, end: 20121127
  6. DIHYDROCODEINE BITARTRATE [Concomitant]
     Indication: PRODUCT USED FOR UNKNOWN INDICATION
     Route: 065

REACTIONS (5)
  - Aplasia [Fatal]
  - Thrombocytopenia [Fatal]
  - Dizziness [Unknown]
  - Headache [Unknown]
  - Nausea [Unknown]
